FAERS Safety Report 17845628 (Version 3)
Quarter: 2020Q3

REPORT INFORMATION
  Report Type: Spontaneous
  Country: US (occurrence: US)
  Receive Date: 20200601
  Receipt Date: 20200925
  Transmission Date: 20201103
  Serious: No
  Sender: FDA-Public Use
  Company Number: US-PFIZER INC-2020212276

PATIENT
  Age: 68 Year
  Sex: Female
  Weight: 88 kg

DRUGS (2)
  1. IBRANCE [Suspect]
     Active Substance: PALBOCICLIB
     Indication: BREAST CANCER FEMALE
     Dosage: 125 MG, CYCLIC (125MG ORAL ONCE DAILY PER 21 DAYS ON 7 DAYS OFF)
     Route: 048
     Dates: end: 202005
  2. IBRANCE [Suspect]
     Active Substance: PALBOCICLIB
     Dosage: 125 MG, CYCLIC (125MG ORAL ONCE DAILY PER 21 DAYS ON 7 DAYS OFF)
     Route: 048
     Dates: start: 202007

REACTIONS (2)
  - White blood cell count decreased [Unknown]
  - Hepatic enzyme increased [Recovering/Resolving]

NARRATIVE: CASE EVENT DATE: 2020
